FAERS Safety Report 12996688 (Version 2)
Quarter: 2017Q3

REPORT INFORMATION
  Report Type: Report from Study
  Country: BE (occurrence: BE)
  Receive Date: 20161204
  Receipt Date: 20170707
  Transmission Date: 20171127
  Serious: Yes (Death)
  Sender: FDA-Public Use
  Company Number: BE-ROCHE-1862652

PATIENT
  Age: 83 Year
  Sex: Male
  Weight: 100 kg

DRUGS (6)
  1. ASAFLOW [Concomitant]
     Active Substance: ASPIRIN
     Route: 065
     Dates: start: 19970101
  2. PIRFENIDONE. [Suspect]
     Active Substance: PIRFENIDONE
     Indication: IDIOPATHIC PULMONARY FIBROSIS
     Route: 048
  3. ZYLORIC [Concomitant]
     Active Substance: ALLOPURINOL
     Route: 065
     Dates: start: 19930101
  4. TEMESTA (BELGIUM) [Concomitant]
     Route: 065
     Dates: start: 20080101
  5. LISINOPRIL. [Concomitant]
     Active Substance: LISINOPRIL
     Route: 065
     Dates: start: 19930101
  6. N-ACETYLCYSTEINE [Concomitant]
     Active Substance: ACETYLCYSTEINE
     Route: 065
     Dates: start: 20150505

REACTIONS (1)
  - Disease progression [Fatal]

NARRATIVE: CASE EVENT DATE: 20160811
